FAERS Safety Report 24952072 (Version 1)
Quarter: 2025Q1

REPORT INFORMATION
  Report Type: Report from Study
  Country: RU (occurrence: RU)
  Receive Date: 20250210
  Receipt Date: 20250210
  Transmission Date: 20250408
  Serious: Yes (Hospitalization)
  Sender: EISAI
  Company Number: RU-Eisai-EC-2025-183544

PATIENT
  Age: 63 Year
  Sex: Male
  Weight: 84 kg

DRUGS (4)
  1. LENVIMA [Suspect]
     Active Substance: LENVATINIB
     Indication: Hepatocellular carcinoma
     Dates: start: 20240221, end: 20240412
  2. LENVIMA [Suspect]
     Active Substance: LENVATINIB
     Dates: start: 20240516, end: 20240915
  3. LENVIMA [Suspect]
     Active Substance: LENVATINIB
     Dates: start: 20240916, end: 20241210
  4. LENVIMA [Suspect]
     Active Substance: LENVATINIB
     Dates: start: 20241211

REACTIONS (3)
  - Coronary artery disease [Recovered/Resolved with Sequelae]
  - Angina unstable [Recovered/Resolved with Sequelae]
  - Cardiac ventricular thrombosis [Recovered/Resolved with Sequelae]

NARRATIVE: CASE EVENT DATE: 20240412
